FAERS Safety Report 20459957 (Version 1)
Quarter: 2022Q1

REPORT INFORMATION
  Report Type: Other
  Country: PL (occurrence: None)
  Receive Date: 20220211
  Receipt Date: 20220211
  Transmission Date: 20220424
  Serious: Yes (Death, Hospitalization)
  Sender: FDA-Public Use
  Company Number: PL-APOTEX-2015AP008971

PATIENT
  Age: 8 Year
  Sex: Male

DRUGS (30)
  1. MYCOPHENOLATE MOFETIL [Suspect]
     Active Substance: MYCOPHENOLATE MOFETIL
     Indication: Immunosuppressant drug therapy
     Dosage: UNK
     Route: 065
  2. METHOTREXATE [Suspect]
     Active Substance: METHOTREXATE
     Indication: Immunosuppressant drug therapy
     Route: 065
     Dates: start: 20101114
  3. METHYLPREDNISOLONE [Suspect]
     Active Substance: METHYLPREDNISOLONE
     Indication: Immunosuppressant drug therapy
     Route: 065
  4. METHYLPREDNISOLONE [Suspect]
     Active Substance: METHYLPREDNISOLONE
     Route: 065
  5. METHYLPREDNISOLONE [Suspect]
     Active Substance: METHYLPREDNISOLONE
     Route: 065
  6. METHYLPREDNISOLONE [Suspect]
     Active Substance: METHYLPREDNISOLONE
     Route: 065
  7. METHYLPREDNISOLONE [Suspect]
     Active Substance: METHYLPREDNISOLONE
     Route: 065
  8. METHYLPREDNISOLONE [Suspect]
     Active Substance: METHYLPREDNISOLONE
     Route: 065
  9. METHYLPREDNISOLONE [Suspect]
     Active Substance: METHYLPREDNISOLONE
     Route: 065
  10. ETANERCEPT [Suspect]
     Active Substance: ETANERCEPT
     Indication: Immunosuppressant drug therapy
     Route: 065
  11. CYCLOSPORINE [Suspect]
     Active Substance: CYCLOSPORINE
     Indication: Immunosuppressant drug therapy
     Route: 065
     Dates: start: 20101114
  12. COTRIMOXAZOLE [Suspect]
     Active Substance: SULFAMETHOXAZOLE\TRIMETHOPRIM
     Indication: Antibiotic therapy
     Route: 065
     Dates: end: 20101216
  13. PREDNISOLONE [Suspect]
     Active Substance: PREDNISOLONE
     Indication: Immunosuppressant drug therapy
     Route: 065
  14. PREDNISOLONE [Suspect]
     Active Substance: PREDNISOLONE
     Route: 065
  15. POSACONAZOLE [Concomitant]
     Active Substance: POSACONAZOLE
     Indication: Respiratory tract infection
     Route: 065
  16. ARGOSULFAN [Concomitant]
     Indication: Antibiotic therapy
     Route: 065
  17. MICAFUNGIN [Concomitant]
     Active Substance: MICAFUNGIN
     Indication: Respiratory tract infection
     Dosage: UNK
     Route: 065
  18. BETADINE (POLAND) [Concomitant]
     Indication: Antibiotic therapy
     Route: 065
  19. TEICOPLANIN [Concomitant]
     Active Substance: TEICOPLANIN
     Indication: Antibiotic therapy
     Route: 065
  20. CASPOFUNGIN [Concomitant]
     Active Substance: CASPOFUNGIN
     Indication: Respiratory tract infection
     Route: 065
  21. OCTENISEPT (POLAND) [Concomitant]
     Indication: Antibiotic therapy
     Route: 065
  22. FLUCONAZOLE [Concomitant]
     Active Substance: FLUCONAZOLE
     Indication: Antifungal prophylaxis
     Dosage: UNK
     Route: 065
     Dates: end: 20101116
  23. IMIPENEM [Concomitant]
     Active Substance: IMIPENEM
     Indication: Antibiotic therapy
     Route: 065
  24. PIPERACILLIN SODIUM\TAZOBACTAM SODIUM [Concomitant]
     Active Substance: PIPERACILLIN SODIUM\TAZOBACTAM SODIUM
     Indication: Antibiotic therapy
     Route: 065
  25. AMPHOTERICIN B [Concomitant]
     Active Substance: AMPHOTERICIN B
     Indication: Respiratory tract infection
     Route: 065
  26. VORICONAZOLE [Concomitant]
     Active Substance: VORICONAZOLE
     Indication: Respiratory tract infection
     Dosage: 1% OINTMENT
     Route: 065
  27. VORICONAZOLE [Concomitant]
     Active Substance: VORICONAZOLE
     Route: 042
  28. AMIKACIN [Concomitant]
     Active Substance: AMIKACIN
     Indication: Antibiotic therapy
     Route: 065
  29. RITUXIMAB [Concomitant]
     Active Substance: RITUXIMAB
     Indication: Product used for unknown indication
     Route: 065
  30. FILGRASTIM [Concomitant]
     Active Substance: FILGRASTIM
     Indication: Granulocytosis
     Route: 065

REACTIONS (7)
  - Multiple organ dysfunction syndrome [Fatal]
  - Haemorrhagic necrotic pancreatitis [Fatal]
  - Circulatory collapse [Unknown]
  - Stevens-Johnson syndrome [Unknown]
  - Drug ineffective [Unknown]
  - Ecthyma [Not Recovered/Not Resolved]
  - Fusarium infection [Not Recovered/Not Resolved]
